FAERS Safety Report 24457874 (Version 1)
Quarter: 2024Q4

REPORT INFORMATION
  Report Type: Report from Study
  Country: US (occurrence: US)
  Receive Date: 20241018
  Receipt Date: 20241018
  Transmission Date: 20250115
  Serious: No
  Sender: ROCHE
  Company Number: US-ROCHE-3436241

PATIENT
  Age: 62 Year
  Sex: Male

DRUGS (2)
  1. CATHFLO ACTIVASE [Suspect]
     Active Substance: ALTEPLASE
     Indication: Dyspnoea
     Dosage: DATE OF SERVICE: 04/SEP/2023 (20 MG). 04/SEP/2023 (80 MG).
     Route: 065
     Dates: start: 20230826
  2. CATHFLO ACTIVASE [Suspect]
     Active Substance: ALTEPLASE
     Indication: Hypoxia

REACTIONS (2)
  - Off label use [Unknown]
  - No adverse event [Unknown]
